FAERS Safety Report 8849173 (Version 1)
Quarter: 2012Q4

REPORT INFORMATION
  Report Type: Spontaneous
  Country: US (occurrence: None)
  Receive Date: 20121017
  Receipt Date: 20121017
  Transmission Date: 20130627
  Serious: Yes (Life-Threatening, Hospitalization, Disabling)
  Sender: FDA-Public Use
  Company Number: None

PATIENT
  Sex: Female
  Weight: 66.68 kg

DRUGS (2)
  1. SEROQUEL [Suspect]
     Indication: PARANOID SCHIZOPHRENIA
  2. GEODON [Suspect]

REACTIONS (3)
  - Paranoia [None]
  - Delusion [None]
  - Violence-related symptom [None]
